FAERS Safety Report 4443591-7 (Version None)
Quarter: 2004Q3

REPORT INFORMATION
  Report Type: 
  Country: None (occurrence: None)
  Receive Date: 20040903
  Receipt Date: 20040903
  Transmission Date: 20050211
  Serious: Yes (Other)
  Sender: FDA-Public Use
  Company Number: None

PATIENT

DRUGS (1)
  1. PAXIL [Suspect]
     Indication: PANIC DISORDER
     Dosage: 20 MG 1 1/2 PO QD
     Route: 048
     Dates: start: 19970101

REACTIONS (2)
  - OBSESSIVE-COMPULSIVE DISORDER [None]
  - PANIC DISORDER [None]
